FAERS Safety Report 7399200-0 (Version None)
Quarter: 2011Q1

REPORT INFORMATION
  Report Type: 
  Country: None (occurrence: None)
  Receive Date: 20110301
  Receipt Date: 20100428
  Transmission Date: 20110831
  Serious: Yes (Hospitalization)
  Sender: FDA-Public Use
  Company Number: RB-08016-2010

PATIENT
  Sex: Female

DRUGS (2)
  1. SUBOXONE [Suspect]
     Indication: DRUG DEPENDENCE
     Dosage: (TAPERING DOSES TO 2 MG DAILY SUBLINGUAL)
     Route: 060
     Dates: start: 20080101, end: 20100101
  2. SUBUTEX [Suspect]
     Indication: DRUG DEPENDENCE
     Dosage: (20 MG SUBLINGUAL)
     Route: 060
     Dates: start: 20100101

REACTIONS (2)
  - DRUG WITHDRAWAL SYNDROME [None]
  - MIGRAINE [None]
